FAERS Safety Report 13862277 (Version 4)
Quarter: 2019Q3

REPORT INFORMATION
  Report Type: Spontaneous
  Country: GR (occurrence: GR)
  Receive Date: 20170813
  Receipt Date: 20190718
  Transmission Date: 20191004
  Serious: Yes (Death, Other)
  Sender: FDA-Public Use
  Company Number: GR-009507513-1708GRC004287

PATIENT
  Age: 58 Year
  Sex: Female

DRUGS (1)
  1. KEYTRUDA [Suspect]
     Active Substance: PEMBROLIZUMAB
     Indication: THYMIC CANCER METASTATIC
     Dosage: UNK
     Route: 042

REACTIONS (12)
  - Stevens-Johnson syndrome [Recovering/Resolving]
  - Autoimmune myocarditis [Fatal]
  - Cardiac arrest [Fatal]
  - Ventricular arrhythmia [Fatal]
  - Cardiac failure [Fatal]
  - Blood lactate dehydrogenase increased [Unknown]
  - Myositis [Unknown]
  - Immune-mediated adverse reaction [Fatal]
  - Transaminases increased [Unknown]
  - Hepatic enzyme increased [Unknown]
  - Off label use [Unknown]
  - C-reactive protein increased [Not Recovered/Not Resolved]
